FAERS Safety Report 5358255-5 (Version None)
Quarter: 2007Q2

REPORT INFORMATION
  Report Type: 
  Country: None (occurrence: None)
  Receive Date: 20070613
  Receipt Date: 20070613
  Transmission Date: 20071010
  Serious: Yes (Other)
  Sender: FDA-Public Use
  Company Number: None

PATIENT
  Sex: Female

DRUGS (6)
  1. AMLODIPINE BESYLATE [Suspect]
     Indication: CARDIAC FAILURE CONGESTIVE
     Dosage: 10 MG DAILY PO
     Route: 048
     Dates: start: 20070531, end: 20070602
  2. AMLODIPINE BESYLATE [Suspect]
     Indication: HYPERTENSION
     Dosage: 10 MG DAILY PO
     Route: 048
     Dates: start: 20070531, end: 20070602
  3. AMLODIPINE BESYLATE [Suspect]
     Indication: PERICARDIAL EFFUSION
     Dosage: 10 MG DAILY PO
     Route: 048
     Dates: start: 20070531, end: 20070602
  4. AMLODIPINE BESYLATE [Suspect]
     Indication: CARDIAC FAILURE CONGESTIVE
     Dosage: 10 MG DAILY PO
     Route: 048
     Dates: start: 20070605, end: 20070607
  5. AMLODIPINE BESYLATE [Suspect]
     Indication: HYPERTENSION
     Dosage: 10 MG DAILY PO
     Route: 048
     Dates: start: 20070605, end: 20070607
  6. AMLODIPINE BESYLATE [Suspect]
     Indication: PERICARDIAL EFFUSION
     Dosage: 10 MG DAILY PO
     Route: 048
     Dates: start: 20070605, end: 20070607

REACTIONS (3)
  - BLOOD PRESSURE INCREASED [None]
  - PRURITUS [None]
  - RASH [None]
